FAERS Safety Report 25432908 (Version 2)
Quarter: 2025Q3

REPORT INFORMATION
  Report Type: Report from Study
  Country: KR (occurrence: KR)
  Receive Date: 20250613
  Receipt Date: 20250924
  Transmission Date: 20251021
  Serious: Yes (Hospitalization)
  Sender: SUNOVION
  Company Number: KR-SUMITOMO PHARMA SWITZERLAND GMBH-2025SPA007367

PATIENT
  Age: 83 Year
  Sex: Male
  Weight: 79 kg

DRUGS (3)
  1. VIBEGRON [Suspect]
     Active Substance: VIBEGRON
     Indication: Hypertonic bladder
     Dosage: 50 MG, QD
     Dates: start: 20240807, end: 20241106
  2. Myungin imipramine hcl [Concomitant]
     Indication: Benign prostatic hyperplasia
     Dosage: 1 DF, QD
     Route: 048
     Dates: start: 20240508
  3. DESMOPRESSIN ACETATE [Concomitant]
     Active Substance: DESMOPRESSIN ACETATE
     Indication: Benign prostatic hyperplasia
     Dosage: 30 ?G, QD
     Route: 048
     Dates: start: 20240508

REACTIONS (1)
  - Mallory-Weiss syndrome [Recovered/Resolved]

NARRATIVE: CASE EVENT DATE: 20240812
